FAERS Safety Report 13965559 (Version 1)
Quarter: 2017Q3

REPORT INFORMATION
  Report Type: Spontaneous
  Country: US (occurrence: US)
  Receive Date: 20170913
  Receipt Date: 20170913
  Transmission Date: 20171128
  Serious: Yes (Hospitalization)
  Sender: FDA-Public Use
  Company Number: US-LPDUSPRD-20171285

PATIENT
  Age: 81 Year
  Sex: Female

DRUGS (1)
  1. HYDRALAZINE HCL INJECTION, USP (0901-25) [Suspect]
     Active Substance: HYDRALAZINE HYDROCHLORIDE
     Dosage: UNKNOWN
     Route: 065

REACTIONS (3)
  - Vasculitis [Unknown]
  - Antineutrophil cytoplasmic antibody positive [Unknown]
  - Pulmonary haemorrhage [Unknown]
